FAERS Safety Report 9942868 (Version 2)
Quarter: 2014Q1

REPORT INFORMATION
  Report Type: Spontaneous
  Country: CA (occurrence: CA)
  Receive Date: 20140303
  Receipt Date: 20140303
  Transmission Date: 20141002
  Serious: Yes (Hospitalization, Other)
  Sender: FDA-Public Use
  Company Number: CA-BAXTER-2014BAX008662

PATIENT
  Age: 63 Year
  Sex: Male

DRUGS (2)
  1. DIANEAL PD4 SOLUTION WITH 2.5% DEXTROSE AND 2.5 MEQ/L CALCIUM [Suspect]
     Indication: RENAL FAILURE
     Dosage: 3 LITER BAGS
     Route: 033
     Dates: start: 201307
  2. EXTRANEAL [Suspect]
     Indication: RENAL FAILURE
     Dosage: 2.5 LITER BAG
     Route: 033
     Dates: start: 201307

REACTIONS (3)
  - Pericarditis [Recovered/Resolved]
  - Blood disorder [Unknown]
  - Unevaluable event [Recovered/Resolved]
